FAERS Safety Report 7650719-4 (Version None)
Quarter: 2011Q3

REPORT INFORMATION
  Report Type: 
  Country: None (occurrence: None)
  Receive Date: 20110802
  Receipt Date: 20110726
  Transmission Date: 20111222
  Serious: Yes (Other)
  Sender: FDA-Public Use
  Company Number: US-US-EMD SERONO, INC.-7073668

PATIENT
  Sex: Female
  Weight: 73 kg

DRUGS (2)
  1. BACLOFEN [Concomitant]
     Indication: MUSCLE SPASMS
  2. REBIF [Suspect]
     Indication: MULTIPLE SCLEROSIS
     Route: 058
     Dates: start: 20000101, end: 20110108

REACTIONS (2)
  - CATARACT [None]
  - MULTIPLE SCLEROSIS [None]
